FAERS Safety Report 9452382 (Version 2)
Quarter: 2013Q3

REPORT INFORMATION
  Report Type: Spontaneous
  Country: US (occurrence: US)
  Receive Date: 20130812
  Receipt Date: 20130926
  Transmission Date: 20140515
  Serious: Yes (Congenital Anomaly, Other)
  Sender: FDA-Public Use
  Company Number: US-JNJFOC-20130802247

PATIENT
  Sex: 0

DRUGS (5)
  1. DARUNAVIR [Suspect]
     Indication: HIV INFECTION
     Route: 064
  2. NORVIR [Suspect]
     Indication: HIV INFECTION
     Route: 064
  3. TRUVADA [Suspect]
     Indication: HIV INFECTION
     Route: 064
  4. DEPAKENE [Suspect]
     Indication: EPILEPSY
     Route: 064
  5. RIVOTRIL [Suspect]
     Indication: EPILEPSY
     Route: 064

REACTIONS (3)
  - Heart disease congenital [Not Recovered/Not Resolved]
  - Intraventricular haemorrhage [Unknown]
  - Foetal exposure during pregnancy [Unknown]
